FAERS Safety Report 9280291 (Version 1)
Quarter: 2013Q2

REPORT INFORMATION
  Report Type: Spontaneous
  Country: US (occurrence: None)
  Receive Date: 20130507
  Receipt Date: 20130507
  Transmission Date: 20140414
  Serious: Yes (Life-Threatening, Hospitalization)
  Sender: FDA-Public Use
  Company Number: None

PATIENT
  Age: 30 Year
  Sex: Female
  Weight: 56.7 kg

DRUGS (1)
  1. ACCUTANE [Suspect]
     Indication: ACNE
     Dosage: 1 PILL
     Dates: start: 20120712, end: 20120801

REACTIONS (8)
  - Lip dry [None]
  - Epistaxis [None]
  - Fatigue [None]
  - Suicide attempt [None]
  - Depression [None]
  - Suicidal ideation [None]
  - Dry eye [None]
  - Rosacea [None]
